FAERS Safety Report 17181847 (Version 4)
Quarter: 2020Q1

REPORT INFORMATION
  Report Type: Report from Study
  Country: None (occurrence: CO)
  Receive Date: 20191220
  Receipt Date: 20200213
  Transmission Date: 20200409
  Serious: Yes (Hospitalization, Other)
  Sender: FDA-Public Use
  Company Number: CO-ABBVIE-19K-036-3201832-00

PATIENT
  Age: 44 Year
  Sex: Male
  Weight: 67 kg

DRUGS (1)
  1. HUMIRA [Suspect]
     Active Substance: ADALIMUMAB
     Indication: ANKYLOSING SPONDYLITIS
     Route: 058
     Dates: start: 20190604, end: 20191115

REACTIONS (13)
  - Neck mass [Unknown]
  - Dizziness [Recovering/Resolving]
  - Tuberculosis [Unknown]
  - Pulmonary mass [Unknown]
  - Meningitis [Recovering/Resolving]
  - Lymphadenopathy [Recovering/Resolving]
  - Lung neoplasm [Recovering/Resolving]
  - Pain [Recovering/Resolving]
  - Decreased appetite [Recovering/Resolving]
  - Weight decreased [Recovering/Resolving]
  - Inflammation [Recovering/Resolving]
  - Chest pain [Recovering/Resolving]
  - Tachycardia [Recovering/Resolving]

NARRATIVE: CASE EVENT DATE: 20191127
